FAERS Safety Report 5150951-8 (Version None)
Quarter: 2006Q4

REPORT INFORMATION
  Report Type: 
  Country: None (occurrence: None)
  Receive Date: 20061115
  Receipt Date: 20061103
  Transmission Date: 20070319
  Serious: Yes (Other)
  Sender: FDA-Public Use
  Company Number: PHFR2006GB03284

PATIENT
  Age: 93 Year
  Sex: Male

DRUGS (1)
  1. LAMISIL [Suspect]
     Indication: FUNGAL INFECTION
     Dosage: UNK, UNK
     Route: 048
     Dates: start: 20060912

REACTIONS (1)
  - BLOOD CREATINE PHOSPHOKINASE INCREASED [None]
